FAERS Safety Report 15398494 (Version 1)
Quarter: 2018Q4

REPORT INFORMATION
  Report Type: Report from Study
  Country: IN (occurrence: IN)
  Receive Date: 20180918
  Receipt Date: 20180918
  Transmission Date: 20190204
  Serious: Yes (Other)
  Sender: FDA-Public Use
  Company Number: IN-AKRON, INC.-2055074

PATIENT

DRUGS (1)
  1. CAPREOMYCIN USP [Suspect]
     Active Substance: CAPREOMYCIN
     Indication: PULMONARY TUBERCULOSIS
     Route: 051

REACTIONS (1)
  - Optic neuritis [Recovering/Resolving]
